FAERS Safety Report 8214963-X (Version None)
Quarter: 2012Q1

REPORT INFORMATION
  Report Type: 
  Country: None (occurrence: None)
  Receive Date: 20120316
  Receipt Date: 20120313
  Transmission Date: 20120608
  Serious: Yes (Life-Threatening)
  Sender: FDA-Public Use
  Company Number: JP-BAYER-2011-094528

PATIENT
  Age: 78 Year
  Sex: Male

DRUGS (2)
  1. NEXAVAR [Suspect]
     Indication: HEPATIC NEOPLASM MALIGNANT
     Dosage: 400 MG, QD
     Route: 048
     Dates: start: 20110922
  2. NEXAVAR [Suspect]
     Dosage: DAILY DOSE 200 MG
     Route: 048
     Dates: start: 20110926, end: 20120122

REACTIONS (3)
  - MALAISE [None]
  - GASTRIC CANCER [None]
  - GINGIVITIS [None]
